FAERS Safety Report 6416302-3 (Version None)
Quarter: 2009Q4

REPORT INFORMATION
  Report Type: 
  Country: None (occurrence: None)
  Receive Date: 20091023
  Receipt Date: 20091014
  Transmission Date: 20100525
  Serious: Yes (Other)
  Sender: FDA-Public Use
  Company Number: SPV1-2009-02023

PATIENT
  Sex: Male

DRUGS (1)
  1. ADDERALL XR 10 [Suspect]
     Indication: DRUG USE FOR UNKNOWN INDICATION
     Dosage: 120 MG, ONE DOSE ( FOUR CAPSULES 30MG ADDERALL XR),; 900 MG, ONE DOSE,

REACTIONS (3)
  - DRUG DIVERSION [None]
  - INTENTIONAL OVERDOSE [None]
  - SUICIDE ATTEMPT [None]
